FAERS Safety Report 8266915-1 (Version None)
Quarter: 2012Q2

REPORT INFORMATION
  Report Type: 
  Country: None (occurrence: None)
  Receive Date: 20120404
  Receipt Date: 20120404
  Transmission Date: 20120825
  Serious: Yes (Other)
  Sender: FDA-Public Use
  Company Number: None

PATIENT
  Age: 43 Year
  Sex: Female

DRUGS (1)
  1. COPAXONE [Suspect]
     Dosage: 20MCG DAILY PO
     Route: 048
     Dates: start: 20110523, end: 20120325

REACTIONS (3)
  - PALPITATIONS [None]
  - DYSPNOEA [None]
  - CHEST PAIN [None]
